FAERS Safety Report 9077906 (Version 1)
Quarter: 2013Q1

REPORT INFORMATION
  Report Type: Spontaneous
  Country: US (occurrence: US)
  Receive Date: 20130130
  Receipt Date: 20130130
  Transmission Date: 20140127
  Serious: No
  Sender: FDA-Public Use
  Company Number: US-ABBOTT-12P-163-0963136-00

PATIENT
  Age: 40 None
  Sex: Female

DRUGS (2)
  1. HUMIRA 40 MG/0.8 ML PEN [Suspect]
     Indication: PUSTULAR PSORIASIS
     Dates: start: 201204, end: 20120517
  2. CHANTIX [Concomitant]
     Indication: PRODUCT USED FOR UNKNOWN INDICATION

REACTIONS (5)
  - Injection site reaction [Unknown]
  - Injection site reaction [Unknown]
  - Rash [Unknown]
  - Off label use [Unknown]
  - Pustular psoriasis [Unknown]
